FAERS Safety Report 9183514 (Version 1)
Quarter: 2012Q4

REPORT INFORMATION
  Report Type: 
  Country: US (occurrence: US)
  Receive Date: 20121101
  Receipt Date: 20121101
  Transmission Date: 20130627
  Serious: No
  Sender: FDA-Public Use
  Company Number: US-PFIZER INC-2012269934

PATIENT
  Age: 59 Year
  Sex: Female

DRUGS (4)
  1. ZITHROMAX [Suspect]
     Dosage: UNK
  2. MORPHINE SULFATE [Suspect]
     Dosage: UNK
  3. CODEINE [Suspect]
  4. DEMEROL [Suspect]

REACTIONS (1)
  - Drug hypersensitivity [Unknown]
